FAERS Safety Report 14486579 (Version 3)
Quarter: 2018Q1

REPORT INFORMATION
  Report Type: Spontaneous
  Country: GB (occurrence: GB)
  Receive Date: 20180205
  Receipt Date: 20180223
  Transmission Date: 20180509
  Serious: Yes (Other)
  Sender: FDA-Public Use
  Company Number: GB-ASPEN-GLO2017GB005413

PATIENT
  Age: 59 Year
  Sex: Male

DRUGS (7)
  1. DEXAMETHASONE. [Suspect]
     Active Substance: DEXAMETHASONE
     Indication: CARDIAC AMYLOIDOSIS
     Dosage: 21-DAY CYCLES (LASTED ONLY 3 CYCLES)
     Route: 065
     Dates: start: 201307
  2. BORTEZOMIB [Suspect]
     Active Substance: BORTEZOMIB
     Indication: CARDIAC AMYLOIDOSIS
     Dosage: 21-DAY CYCLES (LASTED ONLY 3 CYCLES)
     Route: 065
     Dates: start: 201307
  3. ENOXAPARIN [Concomitant]
     Active Substance: ENOXAPARIN
     Indication: THROMBOSIS PROPHYLAXIS
     Dosage: 8 MG, QD
  4. CYCLOPHOSPHAMIDE. [Suspect]
     Active Substance: CYCLOPHOSPHAMIDE
     Indication: CARDIAC AMYLOIDOSIS
     Dosage: 21-DAY CYCLES (LASTED ONLY 3 CYCLES)
     Route: 065
     Dates: start: 201307
  5. DEXAMETHASONE. [Suspect]
     Active Substance: DEXAMETHASONE
     Dosage: 10 MG WEEKLY
     Route: 065
     Dates: start: 201409
  6. DEXAMETHASONE. [Suspect]
     Active Substance: DEXAMETHASONE
     Dosage: 4 MG WEEKLY AFTER SIX CYCLES
     Route: 065
  7. LENALIDOMIDE-CELGENE EUROPE [Concomitant]
     Active Substance: LENALIDOMIDE
     Indication: CARDIAC AMYLOIDOSIS
     Dosage: 25 MG, QD FOR 21 DAYS OF 28-DAY CYCLE
     Dates: start: 201409

REACTIONS (3)
  - Autonomic neuropathy [Recovered/Resolved]
  - Cushingoid [Unknown]
  - Orthostatic hypotension [Recovered/Resolved]
